FAERS Safety Report 6949129-4 (Version None)
Quarter: 2010Q3

REPORT INFORMATION
  Report Type: 
  Country: None (occurrence: None)
  Receive Date: 20100828
  Receipt Date: 20091209
  Transmission Date: 20110219
  Serious: No
  Sender: FDA-Public Use
  Company Number: US-ABBOTT-09P-163-0613312-00

PATIENT
  Sex: Female
  Weight: 89.892 kg

DRUGS (4)
  1. NIASPAN [Suspect]
     Indication: BLOOD CHOLESTEROL INCREASED
     Dosage: AT BEDTIME
     Dates: start: 20091208
  2. BLOOD PRESSURE MEDICATIONS [Concomitant]
     Indication: PRODUCT USED FOR UNKNOWN INDICATION
     Dosage: 2 DIFFERENT KIND
  3. UNSPECIFIED PAIN MEDICATION [Concomitant]
     Indication: BACK DISORDER
  4. UNSPECIFIED THYROID PILL [Concomitant]
     Indication: PRODUCT USED FOR UNKNOWN INDICATION

REACTIONS (1)
  - DIZZINESS [None]
